FAERS Safety Report 12038750 (Version 1)
Quarter: 2016Q1

REPORT INFORMATION
  Report Type: Spontaneous
  Country: US (occurrence: None)
  Receive Date: 20160205
  Receipt Date: 20160205
  Transmission Date: 20160526
  Serious: Yes (Other)
  Sender: FDA-Public Use
  Company Number: None

PATIENT
  Age: 13 Year
  Sex: Male
  Weight: 31.9 kg

DRUGS (2)
  1. GENERIC FOCALIN 10 MG [Suspect]
     Active Substance: DEXMETHYLPHENIDATE HYDROCHLORIDE
     Indication: DRUG THERAPY
     Dosage: 10 MG IN THE AFTERNOON BY MOUTH
     Route: 048
     Dates: start: 20111021
  2. GENERIC FOCALIN XR 30 MG [Suspect]
     Active Substance: DEXMETHYLPHENIDATE HYDROCHLORIDE
     Indication: ATTENTION DEFICIT/HYPERACTIVITY DISORDER
     Dosage: 30 MG XR IN THE MORNING BY MOUTH
     Route: 048
     Dates: start: 20111021

REACTIONS (4)
  - Product substitution issue [None]
  - No therapeutic response [None]
  - Abnormal behaviour [None]
  - Educational problem [None]

NARRATIVE: CASE EVENT DATE: 20160101
